FAERS Safety Report 7012969-X (Version None)
Quarter: 2010Q3

REPORT INFORMATION
  Report Type: 
  Country: None (occurrence: None)
  Receive Date: 20100915
  Receipt Date: 20091026
  Transmission Date: 20110219
  Serious: Yes (Other)
  Sender: FDA-Public Use
  Company Number: US-WYE-H11904709

PATIENT
  Age: 65 Year
  Sex: Female
  Weight: 72.64 kg

DRUGS (2)
  1. ADVIL [Suspect]
     Indication: PAIN
     Dosage: 1 TO 2 LIQUI-GELS AS NEEDED, ORAL
     Route: 048
     Dates: start: 20090801, end: 20091001
  2. SYNTHROID [Concomitant]

REACTIONS (1)
  - MUSCLE SPASMS [None]
